FAERS Safety Report 21481505 (Version 1)
Quarter: 2022Q4

REPORT INFORMATION
  Report Type: Spontaneous
  Country: NL (occurrence: NL)
  Receive Date: 20221020
  Receipt Date: 20221020
  Transmission Date: 20230113
  Serious: Yes (Other)
  Sender: FDA-Public Use
  Company Number: NL-SUN PHARMACEUTICAL INDUSTRIES LTD-2022RR-359919

PATIENT
  Age: 5 Month
  Sex: Male
  Weight: 6.1 kg

DRUGS (8)
  1. SERTRALINE [Suspect]
     Active Substance: SERTRALINE HYDROCHLORIDE
     Indication: Obsessive-compulsive disorder
     Dosage: 1X A DAY HALF SO 25MG. THEN SWITCH TO 50MG
     Route: 065
     Dates: start: 20220303
  2. SERTRALINE [Suspect]
     Active Substance: SERTRALINE HYDROCHLORIDE
     Dosage: THEN SWITCH TO 50 MG
     Route: 065
     Dates: end: 20220403
  3. MAGNESIUMCITRAAT / Brand name not specified [Concomitant]
     Indication: Product used for unknown indication
     Dosage: 200 MG, UNK
     Route: 065
  4. SALBUTAMOL AEROSOL 100UG/DO / VENTOLIN  100 AER CFKVR 100MCG/DO SPBS 2 [Concomitant]
     Indication: Product used for unknown indication
     Dosage: AEROSOL, 100 ?G/DOSE (MICROGRAMS PER DOSE)
     Route: 065
  5. Roter vitamine C [Concomitant]
     Indication: Product used for unknown indication
     Dosage: UNK
     Route: 065
  6. VITAMIN D3 [Concomitant]
     Active Substance: CHOLECALCIFEROL
     Indication: Product used for unknown indication
     Dosage: UNK
     Route: 065
  7. BUDESONIDE INHALATIEPOEDER 200UG/DO / PULMICORT  200 TURBUHALER INHALP [Concomitant]
     Indication: Product used for unknown indication
     Dosage: INHALATION POWDER, 200 ?G/DOSE (MICROGRAMS PER DOSE)
     Route: 065
  8. Multi zwanger mama Etos [Concomitant]
     Indication: Product used for unknown indication
     Dosage: UNK
     Route: 065

REACTIONS (3)
  - Rash [Recovering/Resolving]
  - Vomiting [Recovering/Resolving]
  - Exposure via breast milk [Unknown]
